FAERS Safety Report 9795748 (Version 1)
Quarter: 2014Q1

REPORT INFORMATION
  Report Type: Spontaneous
  Country: US (occurrence: US)
  Receive Date: 20140103
  Receipt Date: 20140103
  Transmission Date: 20141002
  Serious: No
  Sender: FDA-Public Use
  Company Number: US-B.I. PHARMACEUTICALS,INC./RIDGEFIELD-2013-BI-43827BP

PATIENT
  Age: 64 Year
  Sex: Male
  Weight: 113 kg

DRUGS (5)
  1. PRADAXA [Suspect]
     Indication: ATRIAL FIBRILLATION
     Dosage: 300 MG
     Route: 048
     Dates: start: 20131225
  2. DOXAZOSIN [Concomitant]
     Indication: BENIGN PROSTATIC HYPERPLASIA
     Dosage: 4 MG
     Route: 048
  3. BUPROPION [Concomitant]
     Indication: DEPRESSION
     Dosage: 300 MG
     Route: 048
  4. SOTALOL [Concomitant]
     Indication: ATRIAL FIBRILLATION
     Dosage: 80 MG
     Route: 048
  5. NAPROXEN [Concomitant]
     Indication: PAIN
     Route: 048

REACTIONS (2)
  - Dyspepsia [Recovered/Resolved]
  - Throat irritation [Recovered/Resolved]
